FAERS Safety Report 25858065 (Version 1)
Quarter: 2025Q3

REPORT INFORMATION
  Report Type: Spontaneous
  Country: US (occurrence: US)
  Receive Date: 20250929
  Receipt Date: 20250929
  Transmission Date: 20251020
  Serious: Yes (Other)
  Sender: COOPERSURGICAL
  Company Number: US-COOPERSURGICAL, INC.-2025CPS006878

PATIENT
  Sex: Female
  Weight: 56.689 kg

DRUGS (1)
  1. PARAGARD T 380A [Suspect]
     Active Substance: COPPER
     Indication: Contraception
     Route: 015
     Dates: start: 20081022

REACTIONS (20)
  - Reproductive complication associated with device [Unknown]
  - Infertility female [Unknown]
  - Surgery [Recovered/Resolved]
  - Uterine polyp [Unknown]
  - Device breakage [Not Recovered/Not Resolved]
  - Foreign body in reproductive tract [Not Recovered/Not Resolved]
  - Complication of device removal [Not Recovered/Not Resolved]
  - Embedded device [Not Recovered/Not Resolved]
  - Abortion spontaneous [Recovered/Resolved]
  - Anxiety [Not Recovered/Not Resolved]
  - Stress [Unknown]
  - Sensation of foreign body [Unknown]
  - Uterine cervical pain [Unknown]
  - Pain [Not Recovered/Not Resolved]
  - Abnormal uterine bleeding [Unknown]
  - Discomfort [Not Recovered/Not Resolved]
  - Device use issue [Not Recovered/Not Resolved]
  - Off label use [Unknown]
  - Pelvic pain [Not Recovered/Not Resolved]
  - Device expulsion [Not Recovered/Not Resolved]

NARRATIVE: CASE EVENT DATE: 20190101
